FAERS Safety Report 19604271 (Version 9)
Quarter: 2022Q1

REPORT INFORMATION
  Report Type: Report from Study
  Country: KR (occurrence: KR)
  Receive Date: 20210724
  Receipt Date: 20220311
  Transmission Date: 20220424
  Serious: Yes (Hospitalization, Other)
  Sender: FDA-Public Use
  Company Number: KR-ABBVIE-21K-090-4003050-00

PATIENT
  Age: 67 Year
  Sex: Female
  Weight: 72 kg

DRUGS (11)
  1. SKYRIZI [Suspect]
     Active Substance: RISANKIZUMAB-RZAA
     Indication: Psoriasis
     Route: 058
     Dates: start: 20210528, end: 20210528
  2. SKYRIZI [Suspect]
     Active Substance: RISANKIZUMAB-RZAA
     Route: 058
     Dates: start: 20210625, end: 20210625
  3. SKYRIZI [Suspect]
     Active Substance: RISANKIZUMAB-RZAA
     Route: 058
     Dates: start: 20210917, end: 20210917
  4. SKYRIZI [Suspect]
     Active Substance: RISANKIZUMAB-RZAA
     Route: 058
     Dates: start: 20211210, end: 20211210
  5. SKYRIZI [Suspect]
     Active Substance: RISANKIZUMAB-RZAA
     Route: 058
     Dates: start: 20220304, end: 20220304
  6. URSODIOL [Concomitant]
     Active Substance: URSODIOL
     Indication: Liver function test abnormal
     Dosage: URSA-100MG
     Route: 048
     Dates: start: 20210607, end: 20210720
  7. PENNEL [Concomitant]
     Indication: Liver function test abnormal
     Route: 048
     Dates: start: 20210607, end: 20210720
  8. DIETARY SUPPLEMENT\HERBALS\MILK THISTLE [Concomitant]
     Active Substance: DIETARY SUPPLEMENT\HERBALS\MILK THISTLE
     Indication: Liver function test abnormal
     Dosage: 140
     Route: 048
     Dates: start: 20210607
  9. EUVAX B [Concomitant]
     Active Substance: HEPATITIS B VIRUS VACCINE
     Indication: Hepatitis B immunisation
     Dosage: PREFILLED INJECTION
     Route: 030
     Dates: start: 20210607, end: 20210607
  10. EUVAX B [Concomitant]
     Active Substance: HEPATITIS B VIRUS VACCINE
     Dosage: PREFILLED INJECTION
     Route: 030
     Dates: start: 20210705, end: 20210705
  11. DESOWEN [Concomitant]
     Active Substance: DESONIDE
     Indication: Psoriasis
     Dosage: FINGER TIP UNIT, LOTION; DESOWEN LOTION 0.05%
     Route: 061
     Dates: start: 20210625

REACTIONS (1)
  - Hepatic cirrhosis [Not Recovered/Not Resolved]

NARRATIVE: CASE EVENT DATE: 20210705
